FAERS Safety Report 10345314 (Version 1)
Quarter: 2014Q3

REPORT INFORMATION
  Report Type: Other
  Country: SI (occurrence: SI)
  Receive Date: 20140728
  Receipt Date: 20140728
  Transmission Date: 20150326
  Serious: Yes (Hospitalization)
  Sender: FDA-Public Use
  Company Number: SI-VERTEX PHARMACEUTICALS INC-2014-003258

PATIENT
  Age: 60 Year
  Sex: Male

DRUGS (4)
  1. REBETOL [Concomitant]
     Active Substance: RIBAVIRIN
     Indication: PRODUCT USED FOR UNKNOWN INDICATION
     Dosage: UNK
     Route: 065
  2. PEGINTRON [Concomitant]
     Active Substance: PEGINTERFERON ALFA-2B
     Indication: PRODUCT USED FOR UNKNOWN INDICATION
     Dosage: UNK
     Route: 065
  3. CIPRAMIL [Concomitant]
     Active Substance: CITALOPRAM HYDROBROMIDE
     Indication: PRODUCT USED FOR UNKNOWN INDICATION
     Dosage: UNK
     Route: 065
  4. INCIVO [Suspect]
     Active Substance: TELAPREVIR
     Indication: CHRONIC HEPATITIS C
     Dosage: 2250 MG, QD
     Route: 048
     Dates: start: 20140514

REACTIONS (6)
  - Purpura [Unknown]
  - Dehydration [Unknown]
  - Rash macular [Unknown]
  - Pruritus [Unknown]
  - Body temperature increased [Unknown]
  - Erythema [Unknown]

NARRATIVE: CASE EVENT DATE: 20140627
